FAERS Safety Report 4644702-0 (Version None)
Quarter: 2005Q2

REPORT INFORMATION
  Report Type: 
  Country: None (occurrence: None)
  Receive Date: 20050426
  Receipt Date: 20050418
  Transmission Date: 20051028
  Serious: Yes (Hospitalization)
  Sender: FDA-Public Use
  Company Number: US-JNJFOC-20050404312

PATIENT
  Age: 53 Year
  Sex: Female

DRUGS (6)
  1. DURAGESIC [Suspect]
     Route: 062
     Dates: start: 20040601, end: 20050415
  2. HYDROCODONE BITARTRATE [Concomitant]
     Indication: PAIN
     Route: 049
  3. NARCO [Concomitant]
     Indication: PAIN
     Route: 049
  4. ULTRACET [Concomitant]
     Indication: PAIN
     Route: 049
  5. SOMA [Concomitant]
     Indication: MUSCLE SPASMS
     Route: 049
  6. DEMEROL [Concomitant]
     Indication: PAIN
     Route: 049

REACTIONS (10)
  - APPLICATION SITE IRRITATION [None]
  - APPLICATION SITE REACTION [None]
  - DIZZINESS [None]
  - HEART RATE INCREASED [None]
  - HYPERHIDROSIS [None]
  - HYPERTENSION [None]
  - HYPERVENTILATION [None]
  - INSOMNIA [None]
  - IRRITABLE BOWEL SYNDROME [None]
  - VOMITING [None]
